FAERS Safety Report 5744695-9 (Version None)
Quarter: 2008Q2

REPORT INFORMATION
  Report Type: 
  Country: None (occurrence: None)
  Receive Date: 20080520
  Receipt Date: 20080508
  Transmission Date: 20081010
  Serious: Yes (Hospitalization)
  Sender: FDA-Public Use
  Company Number: GB-PFIZER INC-2005136312

PATIENT
  Age: 12 Month
  Sex: Female

DRUGS (9)
  1. PHENYTOIN [Suspect]
     Indication: EPILEPSY
     Route: 042
  2. PHENYTOIN [Interacting]
     Indication: CONVULSION
  3. QUININE SULPHATE [Interacting]
     Indication: PLASMODIUM FALCIPARUM INFECTION
     Route: 042
  4. TOPIRAMATE [Concomitant]
     Route: 065
  5. SULFADOXINE [Concomitant]
     Route: 065
  6. VALPROATE SODIUM [Concomitant]
     Route: 065
  7. PYRIMETHAMINE TAB [Concomitant]
  8. PARALDEHYDE [Concomitant]
     Route: 054
  9. VALPROIC ACID [Concomitant]

REACTIONS (12)
  - DEPRESSED LEVEL OF CONSCIOUSNESS [None]
  - DISEASE RECURRENCE [None]
  - DRUG INEFFECTIVE [None]
  - DRUG INTERACTION [None]
  - DRUG LEVEL DECREASED [None]
  - GRAND MAL CONVULSION [None]
  - IRRITABILITY [None]
  - PLASMODIUM FALCIPARUM INFECTION [None]
  - PYREXIA [None]
  - STATUS EPILEPTICUS [None]
  - TACHYCARDIA [None]
  - TACHYPNOEA [None]
